FAERS Safety Report 4822632-9 (Version None)
Quarter: 2005Q4

REPORT INFORMATION
  Report Type: 
  Country: None (occurrence: None)
  Receive Date: 20051103
  Receipt Date: 20051103
  Transmission Date: 20060501
  Serious: Yes (Life-Threatening, Hospitalization)
  Sender: FDA-Public Use
  Company Number: None

PATIENT
  Age: 79 Year
  Sex: Male
  Weight: 72.1 kg

DRUGS (2)
  1. LISINOPRIL [Suspect]
  2. BACTRIM DS [Suspect]
     Indication: INFECTION
     Dosage: 1 TABLET, 1 TABLET, ORAL
     Route: 048
     Dates: start: 20050322, end: 20050331

REACTIONS (1)
  - HYPERKALAEMIA [None]
